FAERS Safety Report 15818462 (Version 1)
Quarter: 2019Q1

REPORT INFORMATION
  Report Type: Spontaneous
  Country: US (occurrence: US)
  Receive Date: 20190113
  Receipt Date: 20190113
  Transmission Date: 20190417
  Serious: No
  Sender: FDA-Public Use
  Company Number: US-COOPERSURGICAL, INC.-US-2018CPS031917

PATIENT

DRUGS (3)
  1. PARAGARD T 380A [Suspect]
     Active Substance: COPPER
     Indication: CONTRACEPTION
     Dosage: UNK
     Route: 015
     Dates: start: 20180404, end: 20180424
  2. PRENATAL VITAMINS                  /02014401/ [Concomitant]
     Active Substance: VITAMINS
     Indication: BREAST FEEDING
     Dosage: UNK
     Route: 065
  3. IRON [Concomitant]
     Active Substance: IRON
     Indication: BLOOD IRON DECREASED
     Dosage: UNK

REACTIONS (4)
  - Device expulsion [Unknown]
  - Blood iron decreased [Recovering/Resolving]
  - Diarrhoea [Recovered/Resolved]
  - Uterine spasm [Recovered/Resolved]

NARRATIVE: CASE EVENT DATE: 201804
